FAERS Safety Report 16304125 (Version 3)
Quarter: 2019Q4

REPORT INFORMATION
  Report Type: Report from Study
  Country: JP (occurrence: JP)
  Receive Date: 20190513
  Receipt Date: 20191010
  Transmission Date: 20200122
  Serious: Yes (Hospitalization, Other)
  Sender: FDA-Public Use
  Company Number: JP-ACTELION-A-CH2018-176295

PATIENT
  Age: 53 Year
  Sex: Female

DRUGS (41)
  1. EPOPROSTENOL ACT [Suspect]
     Active Substance: EPOPROSTENOL
     Indication: PULMONARY ARTERIAL HYPERTENSION
     Dosage: 24 NG/KG, PER MIN
     Route: 042
     Dates: start: 20160708, end: 20160708
  2. PREDONINE [Suspect]
     Active Substance: PREDNISOLONE
     Dosage: 20 MG, QD
     Route: 048
     Dates: start: 20160622
  3. PREDONINE [Suspect]
     Active Substance: PREDNISOLONE
     Dosage: 15 MG, QD
     Route: 048
     Dates: start: 20160624
  4. PREDONINE [Suspect]
     Active Substance: PREDNISOLONE
     Dosage: 5 MG, QD
     Route: 048
     Dates: start: 20160906, end: 20171001
  5. SAMSCA [Concomitant]
     Active Substance: TOLVAPTAN
  6. ENTERONON-R [Concomitant]
     Active Substance: PROBIOTICS NOS
  7. BAKTAR [Concomitant]
     Active Substance: SULFAMETHOXAZOLE\TRIMETHOPRIM
  8. KALGUT [Concomitant]
     Active Substance: DENOPAMINE
  9. VITAMEDIN [Concomitant]
     Active Substance: CYANOCOBALAMIN\PYRIDOXINE HYDROCHLORIDE\THIAMINE
  10. OXYGEN. [Concomitant]
     Active Substance: OXYGEN
  11. OPSUMIT [Suspect]
     Active Substance: MACITENTAN
     Indication: PULMONARY ARTERIAL HYPERTENSION
     Dosage: 10 MG, QD
     Route: 048
     Dates: start: 20160708
  12. PREDONINE [Suspect]
     Active Substance: PREDNISOLONE
     Dosage: 15 MG, QD
     Route: 048
     Dates: start: 20160726, end: 20160808
  13. PREDONINE [Suspect]
     Active Substance: PREDNISOLONE
     Dosage: 7.5 MG, QD
     Route: 048
     Dates: start: 20160823, end: 20160905
  14. PREDONINE [Suspect]
     Active Substance: PREDNISOLONE
     Dosage: 5 MG, QD
     Route: 048
     Dates: start: 20171016
  15. OLOPATADINE HYDROCHLORIDE. [Concomitant]
     Active Substance: OLOPATADINE HYDROCHLORIDE
  16. NEUROVITAN [Concomitant]
     Active Substance: VITAMINS
  17. LYRICA [Concomitant]
     Active Substance: PREGABALIN
  18. BIO-THREE [Concomitant]
     Active Substance: HERBALS
  19. FERROUS CITRATE NA [Concomitant]
     Active Substance: SODIUM FERROUS CITRATE
  20. CEREKINON [Concomitant]
     Active Substance: TRIMEBUTINE
  21. THYRADIN S [Concomitant]
     Active Substance: LEVOTHYROXINE SODIUM
  22. PREDONINE [Suspect]
     Active Substance: PREDNISOLONE
     Indication: INTERSTITIAL LUNG DISEASE
     Dosage: 20 MG, QD
     Route: 042
     Dates: start: 20160615
  23. DIART [Concomitant]
     Active Substance: AZOSEMIDE
  24. FUROSEMIDE. [Concomitant]
     Active Substance: FUROSEMIDE
  25. SLOW-K [Concomitant]
     Active Substance: POTASSIUM CHLORIDE
  26. LOPEMIN [Concomitant]
  27. EPOPROSTENOL ACT [Suspect]
     Active Substance: EPOPROSTENOL
     Dosage: 24 NG/KG, PER MIN
     Route: 042
     Dates: start: 20170111
  28. CORTRIL [Concomitant]
     Active Substance: HYDROCORTISONE
  29. PREDONINE [Suspect]
     Active Substance: PREDNISOLONE
     Dosage: 10 MG, QD
     Route: 048
     Dates: start: 20160809, end: 20160822
  30. PREDONINE [Suspect]
     Active Substance: PREDNISOLONE
     Dosage: 4.5 MG, QD
     Route: 048
     Dates: start: 20171002, end: 20171015
  31. NEXIUM [Concomitant]
     Active Substance: ESOMEPRAZOLE MAGNESIUM
  32. FEBURIC [Concomitant]
     Active Substance: FEBUXOSTAT
  33. SPIRONOLACTONE. [Concomitant]
     Active Substance: SPIRONOLACTONE
  34. METHYCOBAL [Concomitant]
     Active Substance: METHYLCOBALAMIN
  35. LIXIANA [Concomitant]
     Active Substance: EDOXABAN TOSYLATE
  36. REVATIO [Concomitant]
     Active Substance: SILDENAFIL CITRATE
  37. MIYA-BM [Concomitant]
     Active Substance: CLOSTRIDIUM BUTYRICUM SPORES STRAIN M-55
  38. CALONAL [Concomitant]
     Active Substance: ACETAMINOPHEN
  39. PREDONINE [Suspect]
     Active Substance: PREDNISOLONE
     Dosage: 12.5 MG, QD
     Route: 048
     Dates: start: 20160702, end: 20160712
  40. PREDONINE [Suspect]
     Active Substance: PREDNISOLONE
     Dosage: 20 MG, QD
     Route: 048
     Dates: start: 20160713, end: 20160725
  41. LAMISIL [Concomitant]
     Active Substance: TERBINAFINE HYDROCHLORIDE

REACTIONS (6)
  - Pneumonia [Recovering/Resolving]
  - Hypothyroidism [Recovering/Resolving]
  - Adrenal insufficiency [Recovered/Resolved]
  - Herpes zoster [Recovering/Resolving]
  - Thyroiditis subacute [Recovering/Resolving]
  - Tinea infection [Recovering/Resolving]

NARRATIVE: CASE EVENT DATE: 20160713
